FAERS Safety Report 9506074 (Version 1)
Quarter: 2013Q1

REPORT INFORMATION
  Report Type: Spontaneous
  Country: US (occurrence: None)
  Receive Date: 20130205
  Receipt Date: 20130205
  Transmission Date: 20140127
  Serious: Yes (Other)
  Sender: FDA-Public Use
  Company Number: VAL_00774_2012

PATIENT
  Age: 48 Year
  Sex: Female

DRUGS (1)
  1. EQUETRO [Suspect]
     Indication: BIPOLAR DISORDER
     Route: 048
     Dates: start: 20120426, end: 20120601

REACTIONS (2)
  - Urticaria [None]
  - Rash [None]
